FAERS Safety Report 22946306 (Version 3)
Quarter: 2023Q4

REPORT INFORMATION
  Report Type: Spontaneous
  Country: JP (occurrence: JP)
  Receive Date: 20230915
  Receipt Date: 20231011
  Transmission Date: 20240109
  Serious: Yes (Other)
  Sender: FDA-Public Use
  Company Number: JP-NBI-BJ202313436

PATIENT
  Age: 94 Year
  Sex: Female

DRUGS (23)
  1. JARDIANCE [Suspect]
     Active Substance: EMPAGLIFLOZIN
     Indication: Cardiac failure
     Route: 065
     Dates: start: 20230708, end: 20230714
  2. JARDIANCE [Suspect]
     Active Substance: EMPAGLIFLOZIN
     Route: 065
     Dates: start: 20230801, end: 20230801
  3. BISOPROLOL [Concomitant]
     Active Substance: BISOPROLOL\BISOPROLOL FUMARATE
     Indication: Product used for unknown indication
     Route: 065
     Dates: start: 20230629
  4. BISOPROLOL [Concomitant]
     Active Substance: BISOPROLOL\BISOPROLOL FUMARATE
     Route: 065
     Dates: start: 20230708
  5. BISOPROLOL [Concomitant]
     Active Substance: BISOPROLOL\BISOPROLOL FUMARATE
     Route: 065
  6. PRASUGREL HYDROCHLORIDE [Concomitant]
     Active Substance: PRASUGREL HYDROCHLORIDE
     Indication: Product used for unknown indication
     Route: 065
     Dates: start: 20230727
  7. EDOXABAN TOSYLATE [Concomitant]
     Active Substance: EDOXABAN TOSYLATE
     Indication: Product used for unknown indication
     Route: 065
     Dates: start: 20230714
  8. EDOXABAN TOSYLATE [Concomitant]
     Active Substance: EDOXABAN TOSYLATE
     Route: 065
     Dates: start: 20230727
  9. EDOXABAN TOSYLATE [Concomitant]
     Active Substance: EDOXABAN TOSYLATE
     Route: 065
  10. NICORANDIL [Concomitant]
     Active Substance: NICORANDIL
     Indication: Product used for unknown indication
     Route: 041
     Dates: start: 20230705
  11. NICORANDIL [Concomitant]
     Active Substance: NICORANDIL
     Route: 041
     Dates: start: 20230714
  12. NICORANDIL [Concomitant]
     Active Substance: NICORANDIL
     Route: 041
     Dates: start: 20230727
  13. NICORANDIL [Concomitant]
     Active Substance: NICORANDIL
     Indication: Product used for unknown indication
     Route: 048
     Dates: start: 20230712
  14. NICORANDIL [Concomitant]
     Active Substance: NICORANDIL
     Route: 048
     Dates: start: 20230718
  15. AZOSEMIDE [Concomitant]
     Active Substance: AZOSEMIDE
     Indication: Product used for unknown indication
     Route: 065
     Dates: start: 20230629
  16. AZOSEMIDE [Concomitant]
     Active Substance: AZOSEMIDE
     Route: 065
     Dates: start: 20230704
  17. AZOSEMIDE [Concomitant]
     Active Substance: AZOSEMIDE
     Route: 065
     Dates: end: 20230801
  18. ISOSORBIDE MONONITRATE [Concomitant]
     Active Substance: ISOSORBIDE MONONITRATE
     Indication: Product used for unknown indication
     Route: 065
     Dates: end: 20230715
  19. ASPIRIN [Concomitant]
     Active Substance: ASPIRIN
     Indication: Product used for unknown indication
     Route: 065
     Dates: start: 20230727
  20. CRESTOR [Concomitant]
     Active Substance: ROSUVASTATIN CALCIUM
     Indication: Product used for unknown indication
     Route: 065
     Dates: start: 20230727
  21. SPIRONOLACTONE [Concomitant]
     Active Substance: SPIRONOLACTONE
     Indication: Product used for unknown indication
     Route: 065
     Dates: start: 20230629
  22. SPIRONOLACTONE [Concomitant]
     Active Substance: SPIRONOLACTONE
     Route: 065
     Dates: start: 20230721, end: 20230801
  23. VALSARTAN [Concomitant]
     Active Substance: VALSARTAN
     Indication: Product used for unknown indication
     Route: 065
     Dates: start: 20230724, end: 20230801

REACTIONS (6)
  - Septic shock [Unknown]
  - Urinary tract infection [Recovering/Resolving]
  - Sputum retention [Unknown]
  - Blood pressure decreased [Unknown]
  - Dehydration [Unknown]
  - Inflammation [Unknown]

NARRATIVE: CASE EVENT DATE: 20230714
